FAERS Safety Report 5005053-8 (Version None)
Quarter: 2006Q2

REPORT INFORMATION
  Report Type: 
  Country: None (occurrence: None)
  Receive Date: 20060516
  Receipt Date: 20060516
  Transmission Date: 20061013
  Serious: Yes (Hospitalization, Other)
  Sender: FDA-Public Use
  Company Number: None

PATIENT
  Age: 15 Year
  Sex: Male
  Weight: 72.5755 kg

DRUGS (1)
  1. ACCUTANE [Suspect]
     Indication: ACNE
     Dates: start: 19991001, end: 20000901

REACTIONS (13)
  - ABNORMAL BEHAVIOUR [None]
  - ANTINUCLEAR ANTIBODY POSITIVE [None]
  - ARTHRALGIA [None]
  - BIPOLAR DISORDER [None]
  - DEPRESSION [None]
  - DRY SKIN [None]
  - EPISTAXIS [None]
  - FEELING ABNORMAL [None]
  - GAIT DISTURBANCE [None]
  - MENTAL DISORDER [None]
  - PARANOIA [None]
  - SKIN CHAPPED [None]
  - SUICIDAL IDEATION [None]
